FAERS Safety Report 7221102-0 (Version None)
Quarter: 2011Q1

REPORT INFORMATION
  Report Type: 
  Country: None (occurrence: None)
  Receive Date: 20110112
  Receipt Date: 20110105
  Transmission Date: 20110831
  Serious: No
  Sender: FDA-Public Use
  Company Number: US-PFIZER INC-2011004833

PATIENT
  Age: 3 Year
  Sex: Male
  Weight: 16 kg

DRUGS (1)
  1. CHILDREN'S ADVIL [Suspect]
     Dosage: 1 1/2 TSP TWICE DAILY
     Route: 048
     Dates: end: 20110104

REACTIONS (2)
  - VOMITING [None]
  - MALAISE [None]
